FAERS Safety Report 6173776-3 (Version None)
Quarter: 2009Q2

REPORT INFORMATION
  Report Type: 
  Country: None (occurrence: None)
  Receive Date: 20090430
  Receipt Date: 20090422
  Transmission Date: 20091009
  Serious: Yes (Disabling, Other)
  Sender: FDA-Public Use
  Company Number: NL-AMGEN-UK331796

PATIENT
  Sex: Male
  Weight: 81 kg

DRUGS (10)
  1. ARANESP [Suspect]
     Indication: ANAEMIA
     Route: 065
  2. LANSOPRAZOLE [Concomitant]
     Route: 048
     Dates: start: 20060206
  3. MULTI-VITAMINS [Concomitant]
     Route: 048
     Dates: start: 20060206
  4. CALCICHEW [Concomitant]
     Route: 048
     Dates: start: 20060206
  5. LORAZEPAM [Concomitant]
     Route: 048
     Dates: start: 20060307
  6. LORAMET [Concomitant]
     Route: 048
     Dates: start: 20060307
  7. LABETALOL HCL [Concomitant]
     Route: 048
     Dates: start: 20060206, end: 20080910
  8. LERCANIDIPINE [Concomitant]
     Route: 048
     Dates: start: 20060206
  9. ACENOCOUMAROL [Concomitant]
     Route: 048
     Dates: start: 20060206, end: 20090212
  10. THYROXIN [Concomitant]
     Route: 048
     Dates: start: 20070925, end: 20080923

REACTIONS (2)
  - ANAEMIA [None]
  - DRUG RESISTANCE [None]
